FAERS Safety Report 10914715 (Version 2)
Quarter: 2015Q2

REPORT INFORMATION
  Report Type: Report from Study
  Country: PL (occurrence: PL)
  Receive Date: 20150313
  Receipt Date: 20150430
  Transmission Date: 20150821
  Serious: Yes (Hospitalization, Other)
  Sender: FDA-Public Use
  Company Number: PL-GILEAD-2015-0141675

PATIENT
  Age: 63 Year
  Sex: Male
  Weight: 90 kg

DRUGS (26)
  1. RITUXIMAB [Suspect]
     Active Substance: RITUXIMAB
     Dosage: 1055 MG, CYCLICAL
     Route: 042
     Dates: start: 20150114, end: 20150114
  2. CLEMASTINE [Concomitant]
     Active Substance: CLEMASTINE
     Indication: PREMEDICATION
     Route: 042
     Dates: start: 20150211, end: 20150211
  3. ONDANSETRON [Concomitant]
     Active Substance: ONDANSETRON
     Indication: PROPHYLAXIS OF NAUSEA AND VOMITING
     Route: 042
     Dates: start: 20150211, end: 20150212
  4. BENDAMUSTINE [Suspect]
     Active Substance: BENDAMUSTINE
     Dosage: 190 UNK, UNK
     Route: 042
     Dates: start: 20141204, end: 20141204
  5. BENDAMUSTINE [Suspect]
     Active Substance: BENDAMUSTINE
     Dosage: 1 DF, UNK
     Route: 042
  6. RITUXIMAB [Suspect]
     Active Substance: RITUXIMAB
     Indication: CHRONIC LYMPHOCYTIC LEUKAEMIA
     Dosage: 791 MG, CYCLICAL
     Route: 042
     Dates: start: 20141203, end: 20141203
  7. RITUXIMAB [Suspect]
     Active Substance: RITUXIMAB
     Dosage: 1 DF, UNK
     Route: 042
  8. IDELALISIB [Suspect]
     Active Substance: IDELALISIB
     Indication: CHRONIC LYMPHOCYTIC LEUKAEMIA
     Dosage: 150 MG, BID
     Route: 048
     Dates: start: 20141203, end: 20150310
  9. RITUXIMAB [Suspect]
     Active Substance: RITUXIMAB
     Dosage: 1 DF, UNK
     Route: 042
  10. HEVIRAN                            /00587301/ [Concomitant]
     Indication: INFECTION PROPHYLAXIS
     Route: 048
     Dates: start: 20141203
  11. BENDAMUSTINE [Suspect]
     Active Substance: BENDAMUSTINE
     Dosage: 1 DF, UNK
     Route: 042
  12. BENDAMUSTINE [Suspect]
     Active Substance: BENDAMUSTINE
     Dosage: 1 DF, UNK
     Route: 042
  13. PARACETAMOL [Concomitant]
     Active Substance: ACETAMINOPHEN
     Indication: PREMEDICATION
     Route: 048
     Dates: start: 20150211, end: 20150211
  14. HYDROCORTISONE. [Concomitant]
     Active Substance: HYDROCORTISONE
     Indication: PREMEDICATION
     Route: 042
     Dates: start: 20150211, end: 20150211
  15. BENDAMUSTINE [Suspect]
     Active Substance: BENDAMUSTINE
     Indication: CHRONIC LYMPHOCYTIC LEUKAEMIA
     Dosage: 127 MG, CYCLICAL
     Route: 042
     Dates: start: 20150115, end: 20150115
  16. BENDAMUSTINE [Suspect]
     Active Substance: BENDAMUSTINE
     Dosage: 127 UNK, UNK
     Route: 042
     Dates: start: 20150211, end: 20150211
  17. BENDAMUSTINE [Suspect]
     Active Substance: BENDAMUSTINE
     Dosage: 1 DF, UNK
     Route: 042
  18. BENDAMUSTINE [Suspect]
     Active Substance: BENDAMUSTINE
     Dosage: 1 DF, UNK
     Route: 042
  19. ALLOPURINOL. [Concomitant]
     Active Substance: ALLOPURINOL
     Indication: PROPHYLAXIS
     Route: 048
     Dates: start: 20141203
  20. BENDAMUSTINE [Suspect]
     Active Substance: BENDAMUSTINE
     Dosage: 127 UNK, UNK
     Route: 042
     Dates: start: 20150212, end: 20150212
  21. BENDAMUSTINE [Suspect]
     Active Substance: BENDAMUSTINE
     Dosage: 1 DF, UNK
     Route: 042
  22. RITUXIMAB [Suspect]
     Active Substance: RITUXIMAB
     Dosage: 1055 MG, CYCLICAL
     Route: 042
     Dates: start: 20150211, end: 20150211
  23. BISEPTOL [Concomitant]
     Active Substance: SULFAMETHOXAZOLE\TRIMETHOPRIM
     Indication: INFECTION PROPHYLAXIS
     Route: 048
     Dates: start: 20141203
  24. BENDAMUSTINE [Suspect]
     Active Substance: BENDAMUSTINE
     Dosage: 190 UNK, UNK
     Route: 042
     Dates: start: 20141203, end: 20141203
  25. BENDAMUSTINE [Suspect]
     Active Substance: BENDAMUSTINE
     Dosage: 127 MG, CYCLICAL
     Route: 042
     Dates: start: 20150114, end: 20150114
  26. RITUXIMAB [Suspect]
     Active Substance: RITUXIMAB
     Dosage: 1 DF, UNK
     Route: 042

REACTIONS (1)
  - Pancytopenia [Not Recovered/Not Resolved]

NARRATIVE: CASE EVENT DATE: 20150310
